FAERS Safety Report 8927448 (Version 1)
Quarter: 2012Q4

REPORT INFORMATION
  Report Type: 
  Country: US (occurrence: US)
  Receive Date: 20121127
  Receipt Date: 20121127
  Transmission Date: 20130627
  Serious: No
  Sender: FDA-Public Use
  Company Number: US-MYLANLABS-2012S1004788

PATIENT
  Age: 81 Year
  Sex: Male
  Weight: 73 kg

DRUGS (1)
  1. AMIODARONE HYDROCHLORIDE [Suspect]
     Indication: ATRIAL FLUTTER
     Route: 041
     Dates: start: 20120220, end: 20120221

REACTIONS (2)
  - Injection site extravasation [Not Recovered/Not Resolved]
  - Thermal burn [Not Recovered/Not Resolved]
